FAERS Safety Report 13913522 (Version 1)
Quarter: 2017Q3

REPORT INFORMATION
  Report Type: Spontaneous
  Country: US (occurrence: US)
  Receive Date: 20170828
  Receipt Date: 20170828
  Transmission Date: 20171127
  Serious: No
  Sender: FDA-Public Use
  Company Number: US-ROCHE-1136291

PATIENT
  Sex: Male
  Weight: 26.7 kg

DRUGS (8)
  1. NUTROPIN [Suspect]
     Active Substance: SOMATROPIN
     Indication: GROWTH HORMONE DEFICIENCY
     Dosage: 0.27 CC RATE OF 5 MG/CC
     Route: 065
  2. NUTROPIN [Suspect]
     Active Substance: SOMATROPIN
     Dosage: 0.22 CC
     Route: 065
  3. IRON SUPPLEMENTS [Concomitant]
     Active Substance: IRON
  4. GLUTAMINE [Concomitant]
     Active Substance: GLUTAMINE
     Dosage: 0.7 GM/KG/DAY
     Route: 065
  5. TOBI [Concomitant]
     Active Substance: TOBRAMYCIN
     Route: 065
  6. ADEKS [Concomitant]
     Route: 065
  7. AUGMENTIN [Concomitant]
     Active Substance: AMOXICILLIN\CLAVULANATE POTASSIUM
  8. ZANTAC [Concomitant]
     Active Substance: RANITIDINE HYDROCHLORIDE
     Dosage: 1/2 TABLET
     Route: 065

REACTIONS (3)
  - Abdominal pain [Unknown]
  - Headache [Unknown]
  - Gastroenteritis viral [Unknown]
